FAERS Safety Report 5190095-2 (Version None)
Quarter: 2006Q4

REPORT INFORMATION
  Report Type: 
  Country: None (occurrence: None)
  Receive Date: 20061222
  Receipt Date: 20061211
  Transmission Date: 20070319
  Serious: Yes (Other)
  Sender: FDA-Public Use
  Company Number: US-JNJFOC-20061203485

PATIENT
  Age: 23 Year
  Sex: Female
  Weight: 81.65 kg

DRUGS (1)
  1. ORTHO EVRA [Suspect]
     Indication: CONTRACEPTION
     Route: 048
     Dates: start: 20061101, end: 20061101

REACTIONS (3)
  - CHOKING [None]
  - DERMATITIS ALLERGIC [None]
  - HYPERTENSION [None]
